FAERS Safety Report 16298807 (Version 1)
Quarter: 2019Q2

REPORT INFORMATION
  Report Type: Spontaneous
  Country: GB (occurrence: GB)
  Receive Date: 20190510
  Receipt Date: 20190510
  Transmission Date: 20190711
  Serious: Yes (Hospitalization)
  Sender: FDA-Public Use
  Company Number: GB-ASTRAZENECA-2019SE67431

PATIENT
  Age: 70 Year
  Sex: Female

DRUGS (12)
  1. INSULIN [Concomitant]
     Active Substance: INSULIN NOS
  2. NOVOMIX [Concomitant]
     Active Substance: INSULIN ASPART
  3. OMEPRAZOLE. [Suspect]
     Active Substance: OMEPRAZOLE
     Indication: DYSPEPSIA
     Dosage: 20 MG DAILY MORNING
     Route: 048
     Dates: start: 20180601, end: 20190405
  4. CODEINE [Suspect]
     Active Substance: CODEINE
     Indication: PAIN
     Dosage: 30 - 60MG FOUR TIMES A DAY
     Route: 048
     Dates: start: 20190201, end: 20190405
  5. ENOXAPARIN [Concomitant]
     Active Substance: ENOXAPARIN
  6. NITROFURANTOIN. [Concomitant]
     Active Substance: NITROFURANTOIN
  7. RAMIPRIL. [Concomitant]
     Active Substance: RAMIPRIL
  8. BISOPROLOL [Concomitant]
     Active Substance: BISOPROLOL
  9. PARACETAMOL [Concomitant]
     Active Substance: ACETAMINOPHEN
  10. ACETYLSALICYLIC ACID [Concomitant]
     Active Substance: ASPIRIN
  11. RANITIDINE. [Concomitant]
     Active Substance: RANITIDINE
  12. CO-AMOXICLAV [Concomitant]
     Active Substance: AMOXICILLIN\CLAVULANATE POTASSIUM

REACTIONS (6)
  - Urinary tract infection [Unknown]
  - Hyponatraemia [Recovering/Resolving]
  - Abdominal distension [Unknown]
  - Hyperglycaemia [Unknown]
  - Constipation [Recovered/Resolved]
  - Vomiting [Unknown]

NARRATIVE: CASE EVENT DATE: 20190404
